FAERS Safety Report 8678399 (Version 3)
Quarter: 2013Q2

REPORT INFORMATION
  Report Type: Spontaneous
  Country: US (occurrence: US)
  Receive Date: 20120723
  Receipt Date: 20130412
  Transmission Date: 20140414
  Serious: Yes (Life-Threatening, Other)
  Sender: FDA-Public Use
  Company Number: US-ASTRAZENECA-2012SE26087

PATIENT
  Age: 44 Year
  Sex: Female

DRUGS (5)
  1. SEROQUEL XR [Suspect]
     Route: 048
  2. SEROQUEL XR [Suspect]
     Route: 048
  3. LORAZEPAM [Concomitant]
     Dosage: 1 TABLET BY MOUTH AT BEDTIME IF NEEDED
     Route: 048
  4. LORAZEPAM [Concomitant]
     Dosage: 1/2 - 1 TABLET BY MOUTH AT BEDTIME IF NEEDED
     Route: 048
  5. LITHIUM CARBONATE [Concomitant]
     Dosage: 1 CAPSULE EVERY MORNING AND 2 CAPSULES AT BEDTIME
     Route: 048

REACTIONS (8)
  - Apparent death [Unknown]
  - Depressed level of consciousness [Unknown]
  - Bipolar disorder [Unknown]
  - Frustration [Unknown]
  - Anger [Unknown]
  - Malaise [Unknown]
  - Irritability [Unknown]
  - Drug dose omission [Unknown]
